FAERS Safety Report 13574414 (Version 1)
Quarter: 2017Q2

REPORT INFORMATION
  Report Type: Spontaneous
  Country: KR (occurrence: KR)
  Receive Date: 20170523
  Receipt Date: 20170523
  Transmission Date: 20170830
  Serious: Yes (Death, Hospitalization)
  Sender: FDA-Public Use
  Company Number: KR-INGENUS PHARMACEUTICALS NJ, LLC-ING201705-000265

PATIENT
  Age: 69 Year
  Sex: Female

DRUGS (3)
  1. HEPARIN [Suspect]
     Active Substance: HEPARIN SODIUM
  2. CARISOPRODOL AND ASPIRIN [Suspect]
     Active Substance: ASPIRIN\CARISOPRODOL
  3. CLOPIDOGREL [Suspect]
     Active Substance: CLOPIDOGREL BISULFATE

REACTIONS (5)
  - Multiple organ dysfunction syndrome [Fatal]
  - Arterial rupture [Unknown]
  - Shock haemorrhagic [Unknown]
  - Retroperitoneal haematoma [Unknown]
  - Hypovolaemia [Fatal]
